FAERS Safety Report 8800252 (Version 1)
Quarter: 2012Q4

REPORT INFORMATION
  Report Type: 
  Country: US (occurrence: US)
  Receive Date: 20120921
  Receipt Date: 20120921
  Transmission Date: 20130627
  Serious: Yes (Death, Other)
  Sender: FDA-Public Use
  Company Number: CHPA2012US020054

PATIENT
  Sex: Male

DRUGS (1)
  1. MAALOX ADV MAXIMUM STRENGTH ANTACID/ANTIGAS [Suspect]
     Indication: BOWEL MOVEMENT IRREGULARITY
     Dosage: 1 TSP, PRN
     Route: 048

REACTIONS (4)
  - Death [Fatal]
  - Polymyalgia rheumatica [Unknown]
  - Off label use [Unknown]
  - Underdose [Unknown]
